FAERS Safety Report 13181580 (Version 2)
Quarter: 2017Q1

REPORT INFORMATION
  Report Type: Spontaneous
  Country: NO (occurrence: NO)
  Receive Date: 20170202
  Receipt Date: 20170217
  Transmission Date: 20170428
  Serious: Yes (Other)
  Sender: FDA-Public Use
  Company Number: NO-PFIZER INC-2017039850

PATIENT
  Age: 40 Year
  Sex: Female

DRUGS (1)
  1. CHAMPIX [Suspect]
     Active Substance: VARENICLINE TARTRATE
     Indication: SMOKING CESSATION THERAPY
     Dosage: UNK
     Dates: start: 20170102, end: 20170116

REACTIONS (9)
  - Hypotension [Recovered/Resolved]
  - Pain [Recovering/Resolving]
  - Fear [Recovering/Resolving]
  - Chest pain [Recovered/Resolved]
  - Chest discomfort [Recovered/Resolved]
  - Dizziness [Recovered/Resolved]
  - Fall [Recovered/Resolved]
  - Dyspnoea [Recovered/Resolved]
  - Discomfort [Recovering/Resolving]

NARRATIVE: CASE EVENT DATE: 201701
